FAERS Safety Report 18020237 (Version 1)
Quarter: 2020Q3

REPORT INFORMATION
  Report Type: Spontaneous
  Country: US (occurrence: US)
  Receive Date: 20200714
  Receipt Date: 20200714
  Transmission Date: 20201103
  Serious: Yes (Other)
  Sender: FDA-Public Use
  Company Number: None

PATIENT
  Age: 66 Year
  Sex: Female

DRUGS (10)
  1. SIROLIMUS. [Suspect]
     Active Substance: SIROLIMUS
     Indication: RENAL TRANSPLANT
     Dosage: ?          OTHER FREQUENCY:QOD;?
     Route: 048
     Dates: start: 20190121, end: 20200511
  2. METOPROLOL TART 25MG [Concomitant]
  3. TYLENOL [Concomitant]
     Active Substance: ACETAMINOPHEN
  4. CLONIDINE 0.1MG [Concomitant]
     Active Substance: CLONIDINE
  5. DOXAZOSIN [Concomitant]
     Active Substance: DOXAZOSIN MESYLATE
  6. FUROSEMIDE 20MG [Concomitant]
     Active Substance: FUROSEMIDE
  7. PROBIOTICS [Concomitant]
     Active Substance: PROBIOTICS NOS
  8. TACROLIMUS. [Suspect]
     Active Substance: TACROLIMUS
     Indication: RENAL TRANSPLANT
     Route: 048
     Dates: start: 20190610
  9. ASPIRIN 81MG [Concomitant]
     Active Substance: ASPIRIN
  10. FLUCONAZOLE 200MG [Concomitant]
     Active Substance: FLUCONAZOLE

REACTIONS (3)
  - Colon cancer [None]
  - Dialysis [None]
  - Renal failure [None]

NARRATIVE: CASE EVENT DATE: 20200701
